FAERS Safety Report 13473728 (Version 1)
Quarter: 2017Q2

REPORT INFORMATION
  Report Type: Other
  Country: GB (occurrence: GB)
  Receive Date: 20170424
  Receipt Date: 20170424
  Transmission Date: 20170830
  Serious: Yes (Hospitalization)
  Sender: FDA-Public Use
  Company Number: GB-TAKEDA-2017TJP008816

PATIENT
  Age: 78 Year
  Sex: Female
  Weight: 90 kg

DRUGS (5)
  1. LANSOPRAZOLE. [Suspect]
     Active Substance: LANSOPRAZOLE
     Indication: PRODUCT USED FOR UNKNOWN INDICATION
     Dosage: 15 MG, AS NEEDED (ONCE OR TWICE DAILY WHEN SYMPTOMS FLARE)
     Route: 048
  2. COCODAMOL [Concomitant]
     Active Substance: ACETAMINOPHEN\CODEINE PHOSPHATE
     Dosage: UNK, (30/500)
  3. BISOPROLOL [Concomitant]
     Active Substance: BISOPROLOL
     Dosage: 2.5 MG, QD
  4. WARFARIN [Concomitant]
     Active Substance: WARFARIN
     Dosage: UNK
  5. LOSARTAN. [Concomitant]
     Active Substance: LOSARTAN
     Dosage: 50 MG, QD

REACTIONS (6)
  - Blood calcium decreased [Unknown]
  - C-reactive protein increased [Unknown]
  - Abnormal loss of weight [Unknown]
  - Hypomagnesaemia [Recovering/Resolving]
  - Nausea [Unknown]
  - Inadequate diet [Unknown]
